FAERS Safety Report 13373748 (Version 1)
Quarter: 2017Q1

REPORT INFORMATION
  Report Type: Report from Study
  Country: US (occurrence: US)
  Receive Date: 20170327
  Receipt Date: 20170327
  Transmission Date: 20170429
  Serious: No
  Sender: FDA-Public Use
  Company Number: US-009507513-1703USA002399

PATIENT
  Sex: Female

DRUGS (2)
  1. JANUVIA [Suspect]
     Active Substance: SITAGLIPTIN PHOSPHATE
     Route: 048
  2. GLYBURIDE. [Concomitant]
     Active Substance: GLYBURIDE

REACTIONS (3)
  - Drug dose omission [Unknown]
  - Blood glucose increased [Unknown]
  - Blood glucose decreased [Unknown]
